FAERS Safety Report 6680240-1 (Version None)
Quarter: 2010Q2

REPORT INFORMATION
  Report Type: 
  Country: None (occurrence: None)
  Receive Date: 20100413
  Receipt Date: 20100211
  Transmission Date: 20101027
  Serious: No
  Sender: FDA-Public Use
  Company Number: US-BAUSCH-2010BL000798

PATIENT
  Age: 17 Year
  Sex: Female

DRUGS (1)
  1. OFLOXACIN [Suspect]
     Route: 047
     Dates: start: 20100208, end: 20100210

REACTIONS (4)
  - DRUG DISPENSING ERROR [None]
  - EYE IRRITATION [None]
  - EYE PAIN [None]
  - INCORRECT ROUTE OF DRUG ADMINISTRATION [None]
